FAERS Safety Report 8138103-0 (Version None)
Quarter: 2012Q1

REPORT INFORMATION
  Report Type: 
  Country: None (occurrence: None)
  Receive Date: 20120215
  Receipt Date: 20120215
  Transmission Date: 20120608
  Serious: No
  Sender: FDA-Public Use
  Company Number: None

PATIENT
  Sex: Female
  Weight: 54.431 kg

DRUGS (5)
  1. PREDNISONE TAB [Concomitant]
     Route: 048
  2. DROSPIRENONE AND ETHINYL ESTRADIOL [Suspect]
     Indication: CONTRACEPTION
     Dosage: 1 TAB
     Route: 048
     Dates: start: 20111115, end: 20120209
  3. BENADRYL [Concomitant]
     Route: 048
  4. TRIAMCINOLONE 0.1% CREAM [Concomitant]
     Route: 061
  5. LORATADINE [Concomitant]
     Route: 048

REACTIONS (3)
  - PRURITUS [None]
  - PRODUCT SUBSTITUTION ISSUE [None]
  - RASH GENERALISED [None]
